FAERS Safety Report 5268426-4 (Version None)
Quarter: 2007Q1

REPORT INFORMATION
  Report Type: 
  Country: None (occurrence: None)
  Receive Date: 20070319
  Receipt Date: 20070316
  Transmission Date: 20070707
  Serious: Yes (Hospitalization)
  Sender: FDA-Public Use
  Company Number: FR-GLAXOSMITHKLINE-B0461135A

PATIENT
  Age: 67 Year
  Sex: Male

DRUGS (10)
  1. AVANDAMET [Suspect]
     Indication: DIABETES MELLITUS NON-INSULIN-DEPENDENT
     Route: 048
     Dates: start: 20060701, end: 20061201
  2. LOGIMAX [Suspect]
     Indication: HYPERTENSION
     Route: 048
     Dates: start: 20060701, end: 20061201
  3. VALSARTAN AND HYDROCHLOROTHIAZIDE [Suspect]
     Indication: HYPERTENSION
     Route: 048
     Dates: start: 20060701, end: 20061201
  4. DIAMICRON [Concomitant]
     Route: 065
  5. ATACAND [Concomitant]
     Route: 065
  6. ALDACTONE [Concomitant]
     Route: 065
  7. HYPERIUM [Concomitant]
     Route: 065
  8. ALPRESS [Concomitant]
     Route: 065
  9. LASIX [Concomitant]
     Route: 065
  10. TRIATEC [Concomitant]
     Route: 065

REACTIONS (7)
  - GENERALISED OEDEMA [None]
  - GLOMERULONEPHRITIS [None]
  - HYPOALBUMINAEMIA [None]
  - NEPHROTIC SYNDROME [None]
  - OEDEMA [None]
  - PROTEINURIA [None]
  - WEIGHT INCREASED [None]
